FAERS Safety Report 10682665 (Version 1)
Quarter: 2014Q4

REPORT INFORMATION
  Report Type: Spontaneous
  Country: US (occurrence: US)
  Receive Date: 20141230
  Receipt Date: 20141230
  Transmission Date: 20150529
  Serious: Yes (Other)
  Sender: FDA-Public Use
  Company Number: US-PFIZER INC-2014358172

PATIENT
  Sex: Male

DRUGS (1)
  1. ADVIL [Suspect]
     Active Substance: IBUPROFEN
     Dosage: UNK

REACTIONS (6)
  - Seizure [Unknown]
  - Eating disorder [Unknown]
  - Sensory disturbance [Unknown]
  - Brain neoplasm [Unknown]
  - Central nervous system lesion [Unknown]
  - Autism [Unknown]
